FAERS Safety Report 11939860 (Version 1)
Quarter: 2016Q1

REPORT INFORMATION
  Report Type: Spontaneous
  Country: GB (occurrence: GB)
  Receive Date: 20160122
  Receipt Date: 20160122
  Transmission Date: 20160526
  Serious: Yes (Other)
  Sender: FDA-Public Use
  Company Number: GB-B. BRAUN MEDICAL INC.-1046779

PATIENT
  Age: 23 Year
  Sex: Female
  Weight: 66 kg

DRUGS (4)
  1. METRONIDAZOLE. [Suspect]
     Active Substance: METRONIDAZOLE
     Dates: start: 20151117
  2. COMBINED ORAL CONTRACEPTIVE [Suspect]
     Active Substance: UNSPECIFIED INGREDIENT
  3. CITALOPRAM [Concomitant]
     Active Substance: CITALOPRAM HYDROBROMIDE
     Dates: start: 20151117, end: 20151207
  4. COCODAMOL [Suspect]
     Active Substance: ACETAMINOPHEN\CODEINE PHOSPHATE
     Dates: start: 20151015, end: 20151022

REACTIONS (3)
  - Nausea [Recovered/Resolved]
  - Drug interaction [Unknown]
  - Dyspepsia [Unknown]

NARRATIVE: CASE EVENT DATE: 20151117
